FAERS Safety Report 10989869 (Version 2)
Quarter: 2015Q2

REPORT INFORMATION
  Report Type: Spontaneous
  Country: US (occurrence: US)
  Receive Date: 20150406
  Receipt Date: 20150417
  Transmission Date: 20150821
  Serious: Yes (Other)
  Sender: FDA-Public Use
  Company Number: 2015SP001027

PATIENT
  Sex: Male

DRUGS (1)
  1. APTIOM [Suspect]
     Active Substance: ESLICARBAZEPINE ACETATE
     Route: 048

REACTIONS (6)
  - Pharyngeal oedema [Unknown]
  - Lip swelling [Unknown]
  - Eye swelling [Unknown]
  - Rash [Unknown]
  - Local swelling [Unknown]
  - Pruritus [Unknown]
